FAERS Safety Report 5051965-9 (Version None)
Quarter: 2006Q3

REPORT INFORMATION
  Report Type: 
  Country: None (occurrence: None)
  Receive Date: 20060711
  Receipt Date: 20060619
  Transmission Date: 20061208
  Serious: Yes (Hospitalization, Other)
  Sender: FDA-Public Use
  Company Number: US200604003659

PATIENT
  Age: 63 Year
  Sex: Female

DRUGS (1)
  1. FORTEO [Suspect]
     Indication: OSTEOPOROSIS
     Dates: start: 20040512

REACTIONS (9)
  - ABDOMINAL ADHESIONS [None]
  - ANXIETY [None]
  - DISCOMFORT [None]
  - INJECTION SITE IRRITATION [None]
  - LEIOMYOMA [None]
  - PELVIC MASS [None]
  - PERITONEAL CYST [None]
  - VOMITING [None]
  - WOUND DEHISCENCE [None]
